FAERS Safety Report 4928586-9 (Version None)
Quarter: 2006Q1

REPORT INFORMATION
  Report Type: 
  Country: None (occurrence: None)
  Receive Date: 20060223
  Receipt Date: 20060206
  Transmission Date: 20060701
  Serious: Yes (Hospitalization)
  Sender: FDA-Public Use
  Company Number: US200602001420

PATIENT
  Age: 72 Year
  Sex: Male

DRUGS (9)
  1. HUMULIN N [Suspect]
     Indication: DIABETES MELLITUS
  2. HUMALOG [Suspect]
     Dosage: SEE IMAGE, SUBCUTANEOUS
     Route: 058
     Dates: start: 20060202
  3. LASIX (FUROSEMIDE, FUROSEMIDE SODIUM) [Concomitant]
  4. COREG [Concomitant]
  5. DIGOXIN [Concomitant]
  6. SPIRONOLACTONE [Concomitant]
  7. IMDUR [Concomitant]
  8. NORTRIPTYLINE HCL [Concomitant]
  9. ADVICOR [Concomitant]

REACTIONS (3)
  - BLOOD GLUCOSE INCREASED [None]
  - CARDIAC OPERATION [None]
  - PHARMACEUTICAL PRODUCT COMPLAINT [None]
